FAERS Safety Report 10681481 (Version 2)
Quarter: 2014Q4

REPORT INFORMATION
  Report Type: Report from Study
  Country: JP (occurrence: JP)
  Receive Date: 20141230
  Receipt Date: 20141230
  Transmission Date: 20150529
  Serious: Yes (Other)
  Sender: FDA-Public Use
  Company Number: JP-ROCHE-GNE299732

PATIENT
  Age: 72 Year
  Sex: Male

DRUGS (6)
  1. VISUDYNE [Concomitant]
     Active Substance: VERTEPORFIN
     Indication: PRODUCT USED FOR UNKNOWN INDICATION
     Dosage: UNK
     Route: 065
     Dates: start: 200605, end: 200609
  2. CRAVIT [Concomitant]
     Active Substance: LEVOFLOXACIN
     Indication: PRODUCT USED FOR UNKNOWN INDICATION
     Dosage: UNK
     Route: 065
     Dates: start: 200906, end: 200911
  3. RANIBIZUMAB [Suspect]
     Active Substance: RANIBIZUMAB
     Indication: AGE-RELATED MACULAR DEGENERATION
     Dosage: IN RIGHT EYE
     Route: 050
     Dates: start: 20090625
  4. RANIBIZUMAB [Suspect]
     Active Substance: RANIBIZUMAB
     Route: 050
     Dates: start: 20090910
  5. RANIBIZUMAB [Suspect]
     Active Substance: RANIBIZUMAB
     Dosage: IN RIGHT EYE
     Route: 050
     Dates: start: 20091119
  6. MACUGEN [Concomitant]
     Active Substance: PEGAPTANIB SODIUM
     Indication: PRODUCT USED FOR UNKNOWN INDICATION
     Dosage: UNK
     Route: 065
     Dates: start: 200903, end: 200903

REACTIONS (2)
  - Vitreous injury [Not Recovered/Not Resolved]
  - Cataract subcapsular [Not Recovered/Not Resolved]

NARRATIVE: CASE EVENT DATE: 20090625
